FAERS Safety Report 8158022-3 (Version None)
Quarter: 2012Q1

REPORT INFORMATION
  Report Type: 
  Country: None (occurrence: None)
  Receive Date: 20120222
  Receipt Date: 20120213
  Transmission Date: 20120608
  Serious: Yes (Other)
  Sender: FDA-Public Use
  Company Number: PHFR2011GB006745

PATIENT
  Sex: Female

DRUGS (2)
  1. TEGRETOL [Suspect]
     Indication: TEMPORAL LOBE EPILEPSY
  2. CALCIN [Concomitant]

REACTIONS (4)
  - MIGRAINE [None]
  - DEJA VU [None]
  - MEMORY IMPAIRMENT [None]
  - DRUG INEFFECTIVE [None]
